FAERS Safety Report 6208781-1 (Version None)
Quarter: 2009Q2

REPORT INFORMATION
  Report Type: 
  Country: None (occurrence: None)
  Receive Date: 20090522
  Receipt Date: 20090211
  Transmission Date: 20091009
  Serious: No
  Sender: FDA-Public Use
  Company Number: 8042891

PATIENT
  Age: 31 Year
  Sex: Female
  Weight: 47.7 kg

DRUGS (4)
  1. CIMZIA [Suspect]
     Indication: CROHN'S DISEASE
     Dosage: 400 MG SC
     Route: 058
     Dates: start: 20080923
  2. PREDNISONE [Concomitant]
  3. FLAGYL [Concomitant]
  4. MERCAPTOPURINE [Concomitant]

REACTIONS (1)
  - FURUNCLE [None]
